FAERS Safety Report 11520277 (Version 1)
Quarter: 2015Q3

REPORT INFORMATION
  Report Type: Spontaneous
  Country: US (occurrence: US)
  Receive Date: 20150918
  Receipt Date: 20150918
  Transmission Date: 20151125
  Serious: No
  Sender: FDA-Public Use
  Company Number: US-RB-075926-15

PATIENT

DRUGS (2)
  1. MUCINEX [Suspect]
     Active Substance: GUAIFENESIN
     Indication: PRODUCT USED FOR UNKNOWN INDICATION
     Dosage: 600MG. PATIENT TOOK THE PRODUCT FOR THREE DAYS AND STOPPED.,QD
     Route: 065
     Dates: start: 20150115
  2. MUCINEX [Suspect]
     Active Substance: GUAIFENESIN
     Dosage: 600MG. ,FREQUENCY UNK
     Route: 065
     Dates: start: 201501

REACTIONS (2)
  - Drug ineffective [Not Recovered/Not Resolved]
  - Constipation [Recovered/Resolved]
